FAERS Safety Report 7096221-2 (Version None)
Quarter: 2010Q4

REPORT INFORMATION
  Report Type: 
  Country: None (occurrence: None)
  Receive Date: 20101109
  Receipt Date: 20101109
  Transmission Date: 20110411
  Serious: Yes (Other)
  Sender: FDA-Public Use
  Company Number: None

PATIENT
  Age: 53 Year
  Sex: Female
  Weight: 77.1115 kg

DRUGS (2)
  1. CYMBALTA [Suspect]
     Indication: FIBROMYALGIA
     Dosage: 30 MG 1 PER DAY PO
     Route: 048
     Dates: start: 20100927, end: 20100930
  2. CYMBALTA [Suspect]
     Indication: FIBROMYALGIA
     Dosage: 30 MG 1 PER DAY PO
     Route: 048
     Dates: start: 20100930, end: 20100930

REACTIONS (6)
  - INSOMNIA [None]
  - MIGRAINE [None]
  - NAUSEA [None]
  - TREATMENT NONCOMPLIANCE [None]
  - TREMOR [None]
  - VERTIGO [None]
